FAERS Safety Report 25597599 (Version 1)
Quarter: 2025Q3

REPORT INFORMATION
  Report Type: Spontaneous
  Country: US (occurrence: None)
  Receive Date: 20250723
  Receipt Date: 20250723
  Transmission Date: 20251021
  Serious: Yes (Disabling, Other)
  Sender: FDA-CTU
  Company Number: None

PATIENT
  Age: 74 Year
  Sex: Female
  Weight: 57.6 kg

DRUGS (3)
  1. PROLIA [Suspect]
     Active Substance: DENOSUMAB
     Indication: Osteoporosis
     Route: 058
     Dates: start: 20250630, end: 20250630
  2. SYNTHROID [Concomitant]
     Active Substance: LEVOTHYROXINE SODIUM
  3. Calciven [Concomitant]

REACTIONS (14)
  - Condition aggravated [None]
  - Osteoporosis [None]
  - Peripheral swelling [None]
  - Joint swelling [None]
  - Peripheral swelling [None]
  - Back pain [None]
  - Muscular weakness [None]
  - Fall [None]
  - Skin burning sensation [None]
  - Pain of skin [None]
  - Skin plaque [None]
  - Inflammation [None]
  - Spinal fracture [None]
  - Hypertension [None]

NARRATIVE: CASE EVENT DATE: 20250707
